FAERS Safety Report 7878357-9 (Version None)
Quarter: 2011Q4

REPORT INFORMATION
  Report Type: 
  Country: None (occurrence: None)
  Receive Date: 20111101
  Receipt Date: 20111024
  Transmission Date: 20120403
  Serious: Yes (Hospitalization)
  Sender: FDA-Public Use
  Company Number: US-US-EMD SERONO, INC.-7050513

PATIENT
  Sex: Female
  Weight: 59 kg

DRUGS (5)
  1. REBIF [Suspect]
     Indication: MULTIPLE SCLEROSIS
     Route: 058
     Dates: start: 20110221
  2. ASPIRIN [Concomitant]
     Dates: end: 20110201
  3. REBIF [Suspect]
     Dates: start: 20110101
  4. REBIF [Suspect]
     Route: 058
     Dates: start: 20110406, end: 20110414
  5. ASPIRIN [Concomitant]
     Dates: start: 20110501

REACTIONS (10)
  - ASTHENIA [None]
  - POOR QUALITY SLEEP [None]
  - FATIGUE [None]
  - HIATUS HERNIA [None]
  - FALL [None]
  - TRANSIENT ISCHAEMIC ATTACK [None]
  - MEMORY IMPAIRMENT [None]
  - INJECTION SITE ERYTHEMA [None]
  - URINARY TRACT INFECTION [None]
  - COLITIS [None]
